FAERS Safety Report 12756736 (Version 2)
Quarter: 2016Q3

REPORT INFORMATION
  Report Type: Spontaneous
  Country: US (occurrence: US)
  Receive Date: 20160917
  Receipt Date: 20160921
  Transmission Date: 20161109
  Serious: No
  Sender: FDA-Public Use
  Company Number: US-B.I. PHARMACEUTICALS,INC./RIDGEFIELD-2016-BI-58512BP

PATIENT
  Sex: Female

DRUGS (1)
  1. SPIRIVA [Suspect]
     Active Substance: TIOTROPIUM BROMIDE MONOHYDRATE
     Indication: SJOGREN^S SYNDROME
     Dosage: 5 MCG
     Route: 055

REACTIONS (4)
  - Choking [Unknown]
  - Dysphonia [Unknown]
  - Off label use [Unknown]
  - Cough [Unknown]
